FAERS Safety Report 14473016 (Version 1)
Quarter: 2018Q1

REPORT INFORMATION
  Report Type: Report from Study
  Country: None (occurrence: CA)
  Receive Date: 20180201
  Receipt Date: 20180201
  Transmission Date: 20180509
  Serious: Yes (Other)
  Sender: FDA-Public Use
  Company Number: CA-ABBVIE-18K-028-2238498-00

PATIENT
  Age: 33 Year
  Sex: Female

DRUGS (2)
  1. HUMIRA [Suspect]
     Active Substance: ADALIMUMAB
     Indication: CROHN^S DISEASE
     Route: 058
     Dates: start: 20161019
  2. HUMIRA [Suspect]
     Active Substance: ADALIMUMAB
     Route: 058

REACTIONS (10)
  - Reproductive tract disorder [Unknown]
  - Frequent bowel movements [Unknown]
  - Breast mass [Not Recovered/Not Resolved]
  - Aphthous ulcer [Unknown]
  - Mouth ulceration [Unknown]
  - Stress [Not Recovered/Not Resolved]
  - Crohn^s disease [Unknown]
  - Intestinal polyp [Unknown]
  - Lower respiratory tract infection [Unknown]
  - Rash papular [Unknown]

NARRATIVE: CASE EVENT DATE: 201708
